FAERS Safety Report 16644077 (Version 3)
Quarter: 2019Q3

REPORT INFORMATION
  Report Type: Spontaneous
  Country: US (occurrence: US)
  Receive Date: 20190729
  Receipt Date: 20190819
  Transmission Date: 20191004
  Serious: Yes (Hospitalization)
  Sender: FDA-Public Use
  Company Number: US-ELI_LILLY_AND_COMPANY-US201907007794

PATIENT
  Sex: Male

DRUGS (7)
  1. HUMALOG [Suspect]
     Active Substance: INSULIN LISPRO
     Indication: DIABETES MELLITUS
     Dosage: 40 U, DAILY
     Route: 058
  2. NOVOLIN [Suspect]
     Active Substance: INSULIN HUMAN
     Indication: PRODUCT USED FOR UNKNOWN INDICATION
     Dosage: 2 U, OTHER (EVERY HOUR FOR 24 HOURS)
     Route: 058
  3. NOVOLIN [Suspect]
     Active Substance: INSULIN HUMAN
     Dosage: 20 U, EACH EVENING ( 20 UNITS AT A 1:10 RATIO)
     Route: 058
  4. NOVOLIN [Suspect]
     Active Substance: INSULIN HUMAN
     Dosage: 14 U, OTHER (WITH BREAKFAST AND LUNCH)
     Route: 058
  5. HUMULIN N [Suspect]
     Active Substance: INSULIN HUMAN
     Indication: DIABETES MELLITUS
     Dosage: UNK UNK, UNKNOWN
     Route: 058
  6. HUMALOG KWIKPEN [Suspect]
     Active Substance: INSULIN LISPRO
     Indication: DIABETES MELLITUS
     Dosage: 30 U, DAILY
     Route: 058
  7. HUMALOG KWIKPEN [Suspect]
     Active Substance: INSULIN LISPRO
     Dosage: 60 U, DAILY
     Route: 058

REACTIONS (13)
  - Blood glucose increased [Recovering/Resolving]
  - Hypoglycaemia [Unknown]
  - Dehydration [Recovering/Resolving]
  - Pollakiuria [Recovering/Resolving]
  - Drug ineffective [Unknown]
  - Feeding disorder [Recovering/Resolving]
  - Glycosylated haemoglobin increased [Not Recovered/Not Resolved]
  - Blood glucose abnormal [Not Recovered/Not Resolved]
  - Hypersomnia [Recovering/Resolving]
  - Incorrect dose administered [Unknown]
  - Blood glucose increased [Not Recovered/Not Resolved]
  - Wrong technique in product usage process [Unknown]
  - General physical health deterioration [Unknown]

NARRATIVE: CASE EVENT DATE: 20190801
